FAERS Safety Report 13867252 (Version 1)
Quarter: 2017Q3

REPORT INFORMATION
  Report Type: Report from Study
  Country: US (occurrence: US)
  Receive Date: 20170814
  Receipt Date: 20170814
  Transmission Date: 20171127
  Serious: No
  Sender: FDA-Public Use
  Company Number: US-ACADIA PHARMACEUTICALS INC.-ACA-2017-004604

PATIENT
  Age: 89 Year
  Sex: Male

DRUGS (1)
  1. NUPLAZID [Suspect]
     Active Substance: PIMAVANSERIN TARTRATE
     Indication: MULTIPLE SCLEROSIS
     Dosage: 17 MG, QD
     Route: 048
     Dates: start: 20170706

REACTIONS (3)
  - Prescribed underdose [Unknown]
  - Off label use [Unknown]
  - Oral discomfort [Unknown]

NARRATIVE: CASE EVENT DATE: 20170706
